FAERS Safety Report 6696334-0 (Version None)
Quarter: 2010Q2

REPORT INFORMATION
  Report Type: 
  Country: None (occurrence: None)
  Receive Date: 20100422
  Receipt Date: 20100412
  Transmission Date: 20101027
  Serious: Yes (Hospitalization)
  Sender: FDA-Public Use
  Company Number: 2010SP020830

PATIENT
  Age: 83 Year
  Sex: Male

DRUGS (7)
  1. MIRTAZAPINE [Suspect]
     Indication: ANXIETY
     Dosage: 15 MG;QD; PO
     Route: 048
     Dates: start: 20100201, end: 20100310
  2. MIRTAZAPINE [Suspect]
     Indication: DEPRESSION
     Dosage: 15 MG;QD; PO
     Route: 048
     Dates: start: 20100201, end: 20100310
  3. RAMIPRIL [Concomitant]
  4. KARDEGIC [Concomitant]
  5. NEXIUM [Concomitant]
  6. LYSANXIA [Concomitant]
  7. PREVISCAN [Concomitant]

REACTIONS (6)
  - ANAEMIA [None]
  - CHOLESTASIS [None]
  - CYTOLYTIC HEPATITIS [None]
  - GENERAL PHYSICAL HEALTH DETERIORATION [None]
  - HAEMORRHAGE [None]
  - PHLEBITIS [None]
